FAERS Safety Report 15477431 (Version 4)
Quarter: 2018Q4

REPORT INFORMATION
  Report Type: Report from Study
  Country: FR (occurrence: FR)
  Receive Date: 20181009
  Receipt Date: 20181220
  Transmission Date: 20190205
  Serious: Yes (Death)
  Sender: FDA-Public Use
  Company Number: FR-TAKEDA-2018MPI012482

PATIENT
  Age: 71 Year
  Sex: Male
  Weight: 64 kg

DRUGS (6)
  1. IXAZOMIB [Suspect]
     Active Substance: IXAZOMIB
     Indication: PLASMA CELL MYELOMA
     Dosage: 5.5 MG, UNK
     Route: 048
     Dates: start: 20180828, end: 20181004
  2. ATARAX [Concomitant]
     Active Substance: HYDROXYZINE HYDROCHLORIDE
     Indication: STRESS
     Dosage: 25 MG, QD
     Route: 048
     Dates: start: 20180727
  3. UVEDOSE [Concomitant]
     Active Substance: CHOLECALCIFEROL
     Indication: VITAMIN SUPPLEMENTATION
     Dosage: UNK
     Route: 048
  4. IXPRIM [Concomitant]
     Active Substance: ACETAMINOPHEN\TRAMADOL HYDROCHLORIDE
     Indication: SPINAL PAIN
     Dosage: 37.5 MG, Q8HR
     Route: 048
     Dates: start: 20180828
  5. DEXAMETHASONE. [Suspect]
     Active Substance: DEXAMETHASONE
     Indication: PLASMA CELL MYELOMA
     Dosage: 20 MG, UNK
     Route: 048
     Dates: start: 20180828, end: 20181004
  6. VALACICLOVIR [Concomitant]
     Active Substance: VALACYCLOVIR HYDROCHLORIDE
     Indication: INFECTION PROPHYLAXIS
     Dosage: 500 MG, BID
     Route: 048
     Dates: start: 20130114

REACTIONS (1)
  - Gastrointestinal disorder [Fatal]

NARRATIVE: CASE EVENT DATE: 20181001
